FAERS Safety Report 5035254-4 (Version None)
Quarter: 2006Q2

REPORT INFORMATION
  Report Type: 
  Country: None (occurrence: None)
  Receive Date: 20060519
  Receipt Date: 20060228
  Transmission Date: 20061013
  Serious: No
  Sender: FDA-Public Use
  Company Number: TPA2006A00439

PATIENT
  Sex: Male

DRUGS (3)
  1. ROZEREM [Suspect]
     Dosage: PER ORAL
     Route: 048
  2. LITHIUM (LITHIUM) [Suspect]
     Indication: BIPOLAR DISORDER
  3. DEPAKOTE [Suspect]
     Indication: BIPOLAR DISORDER

REACTIONS (4)
  - AGITATION [None]
  - ANXIETY [None]
  - HEART RATE INCREASED [None]
  - INITIAL INSOMNIA [None]
